FAERS Safety Report 14907271 (Version 12)
Quarter: 2019Q1

REPORT INFORMATION
  Report Type: Spontaneous
  Country: DE (occurrence: DE)
  Receive Date: 20180517
  Receipt Date: 20190326
  Transmission Date: 20190417
  Serious: Yes (Disabling, Other)
  Sender: FDA-Public Use
  Company Number: DE-TEVA-2018-DE-893574

PATIENT
  Age: 77 Year
  Sex: Female
  Weight: 54 kg

DRUGS (22)
  1. METHOTREXATE SODIUM. [Suspect]
     Active Substance: METHOTREXATE SODIUM
     Route: 065
  2. METHOTREXATE SODIUM. [Suspect]
     Active Substance: METHOTREXATE SODIUM
     Route: 065
  3. METHOTREXATE SODIUM. [Suspect]
     Active Substance: METHOTREXATE SODIUM
     Route: 065
  4. CERTOLIZUMAB [Suspect]
     Active Substance: CERTOLIZUMAB
     Route: 065
  5. PROLIA [Suspect]
     Active Substance: DENOSUMAB
     Indication: OSTEOPOROSIS
     Dosage: Q6MO
     Route: 065
     Dates: start: 201602, end: 201801
  6. PREDNISOLONE. [Concomitant]
     Active Substance: PREDNISOLONE
     Indication: RHEUMATOID ARTHRITIS
     Dosage: UNK
     Route: 065
     Dates: start: 201707
  7. ARCOXIA [Concomitant]
     Active Substance: ETORICOXIB
     Indication: OSTEOARTHRITIS
     Dosage: 120 MILLIGRAM DAILY;
     Route: 065
  8. PALEXIA [Concomitant]
     Active Substance: TAPENTADOL HYDROCHLORIDE
     Indication: PRODUCT USED FOR UNKNOWN INDICATION
     Dosage: UNK UNK, QD (IN MORNINGS)
     Route: 065
  9. CERTOLIZUMAB [Suspect]
     Active Substance: CERTOLIZUMAB
     Indication: RHEUMATOID ARTHRITIS
     Dosage: UNK
     Route: 065
  10. CERTOLIZUMAB [Suspect]
     Active Substance: CERTOLIZUMAB
     Route: 065
  11. CALCIUM [Concomitant]
     Active Substance: CALCIUM
     Indication: PRODUCT USED FOR UNKNOWN INDICATION
     Dosage: UNK
     Route: 065
  12. METHOTREXATE SODIUM. [Suspect]
     Active Substance: METHOTREXATE SODIUM
     Indication: PRODUCT USED FOR UNKNOWN INDICATION
     Dosage: UNK
     Route: 065
  13. METHOTREXATE SODIUM. [Suspect]
     Active Substance: METHOTREXATE SODIUM
     Route: 065
  14. METHOTREXATE SODIUM. [Suspect]
     Active Substance: METHOTREXATE SODIUM
     Route: 065
  15. PROLIA [Suspect]
     Active Substance: DENOSUMAB
     Route: 065
  16. VITAMIN D /00107901/ [Concomitant]
     Active Substance: ERGOCALCIFEROL
     Indication: PRODUCT USED FOR UNKNOWN INDICATION
     Dosage: UNK
     Route: 065
  17. ARCOXIA [Concomitant]
     Active Substance: ETORICOXIB
     Indication: RHEUMATOID ARTHRITIS
     Dosage: 120 MILLIGRAM DAILY;
     Route: 065
  18. CERTOLIZUMAB [Suspect]
     Active Substance: CERTOLIZUMAB
     Route: 065
  19. CERTOLIZUMAB [Suspect]
     Active Substance: CERTOLIZUMAB
     Route: 065
  20. ENBREL [Suspect]
     Active Substance: ETANERCEPT
     Indication: RHEUMATOID ARTHRITIS
     Dosage: UNK
     Route: 065
     Dates: start: 2016, end: 2017
  21. CERTOLIZUMAB [Suspect]
     Active Substance: CERTOLIZUMAB
     Route: 065
  22. ARCOXIA [Concomitant]
     Active Substance: ETORICOXIB
     Indication: RHEUMATOID ARTHRITIS
     Route: 065

REACTIONS (11)
  - Thoracic vertebral fracture [Not Recovered/Not Resolved]
  - Nervous system disorder [Unknown]
  - Lumbar vertebral fracture [Not Recovered/Not Resolved]
  - Hyperlipidaemia [Unknown]
  - Aortic valve stenosis [Not Recovered/Not Resolved]
  - Gastrointestinal disorder [Unknown]
  - Drug ineffective [Unknown]
  - Synovectomy [Unknown]
  - Spinal fracture [Not Recovered/Not Resolved]
  - Synovial disorder [Unknown]
  - Carotid artery stenosis [Unknown]

NARRATIVE: CASE EVENT DATE: 201704
